FAERS Safety Report 25981501 (Version 2)
Quarter: 2025Q4

REPORT INFORMATION
  Report Type: Report from Study
  Country: MX (occurrence: MX)
  Receive Date: 20251030
  Receipt Date: 20251128
  Transmission Date: 20260118
  Serious: Yes (Death, Hospitalization, Other)
  Sender: ABBVIE
  Company Number: MX-ABBVIE-6522369

PATIENT
  Age: 75 Year
  Sex: Male
  Weight: 74 kg

DRUGS (2)
  1. VENETOCLAX [Suspect]
     Active Substance: VENETOCLAX
     Indication: Chronic lymphocytic leukaemia
     Dosage: FORM STRENGTH- 100 MG X 120
     Route: 048
     Dates: start: 20250113, end: 20250919
  2. IBRUTINIB [Suspect]
     Active Substance: IBRUTINIB
     Indication: Chronic lymphocytic leukaemia
     Route: 048

REACTIONS (21)
  - Death [Fatal]
  - Malaise [Unknown]
  - Hypothermia [Not Recovered/Not Resolved]
  - Undersensing [Not Recovered/Not Resolved]
  - Decreased appetite [Unknown]
  - Hepatic failure [Not Recovered/Not Resolved]
  - Renal failure [Not Recovered/Not Resolved]
  - Swelling [Unknown]
  - Urinary retention [Not Recovered/Not Resolved]
  - Fall [Unknown]
  - Fall [Recovered/Resolved]
  - Splenitis [Not Recovered/Not Resolved]
  - Cardiomegaly [Unknown]
  - Gastrointestinal injury [Unknown]
  - Gastrointestinal injury [Recovered/Resolved]
  - Dengue fever [Recovered/Resolved]
  - Asthenia [Unknown]
  - Blood uric acid abnormal [Recovered/Resolved]
  - Lymphocytosis [Not Recovered/Not Resolved]
  - Abdominal pain [Unknown]
  - Tumour lysis syndrome [Unknown]

NARRATIVE: CASE EVENT DATE: 20250101
